FAERS Safety Report 8867296 (Version 1)
Quarter: 2012Q4

REPORT INFORMATION
  Report Type: 
  Country: US (occurrence: US)
  Receive Date: 20121025
  Receipt Date: 20121025
  Transmission Date: 20130627
  Serious: No
  Sender: FDA-Public Use
  Company Number: US-AMGEN-USASP2012015884

PATIENT
  Age: 49 Year
  Sex: Male
  Weight: 58.05 kg

DRUGS (7)
  1. ENBREL [Suspect]
     Indication: PRODUCT USED FOR UNKNOWN INDICATION
     Dosage: 50 mg, qwk
     Route: 058
  2. FOLIC ACID [Concomitant]
     Dosage: 20 mg, UNK
  3. METHOTREXATE [Concomitant]
     Dosage: 2.5 mg, UNK
  4. CALCIUM 500+D [Concomitant]
  5. VITAMIN C                          /00008001/ [Concomitant]
     Dosage: 500 mg, UNK
  6. DILANTIN                           /00017401/ [Concomitant]
     Dosage: 100 mg, UNK
  7. ALENDRONATE [Concomitant]
     Dosage: 5 mg, UNK

REACTIONS (1)
  - Nasopharyngitis [Recovered/Resolved]
